FAERS Safety Report 17078466 (Version 1)
Quarter: 2019Q4

REPORT INFORMATION
  Report Type: Report from Study
  Country: None (occurrence: US)
  Receive Date: 20191126
  Receipt Date: 20191126
  Transmission Date: 20200122
  Serious: Yes (Hospitalization)
  Sender: FDA-Public Use
  Company Number: US-ABBVIE-19K-163-3013518-00

PATIENT
  Age: 68 Year
  Sex: Male

DRUGS (1)
  1. HUMIRA [Suspect]
     Active Substance: ADALIMUMAB
     Indication: RHEUMATOID ARTHRITIS
     Route: 058
     Dates: start: 201811, end: 2019

REACTIONS (7)
  - Gait disturbance [Not Recovered/Not Resolved]
  - Arthralgia [Recovering/Resolving]
  - Prostate infection [Recovered/Resolved]
  - Atrial fibrillation [Recovering/Resolving]
  - Pain [Recovering/Resolving]
  - Arthropod sting [Recovering/Resolving]
  - Joint stiffness [Recovering/Resolving]

NARRATIVE: CASE EVENT DATE: 201811
